FAERS Safety Report 22134943 (Version 1)
Quarter: 2023Q1

REPORT INFORMATION
  Report Type: Spontaneous
  Country: US (occurrence: US)
  Receive Date: 20230324
  Receipt Date: 20230324
  Transmission Date: 20230418
  Serious: Yes (Other)
  Sender: FDA-Public Use
  Company Number: US-MLMSERVICE-20230309-4154234-1

PATIENT
  Age: 30 Year
  Sex: Male

DRUGS (3)
  1. CISPLATIN [Suspect]
     Active Substance: CISPLATIN
     Indication: Testicular cancer metastatic
     Dosage: 1 CYCLICAL?FIRST OF FOUR CYCLES
  2. BLEOMYCIN [Concomitant]
     Active Substance: BLEOMYCIN SULFATE
     Indication: Testicular cancer metastatic
     Dosage: FIRST OF FOUR CYCLES
  3. ETOPOSIDE [Concomitant]
     Active Substance: ETOPOSIDE
     Indication: Testicular cancer metastatic
     Dosage: FIRST OF FOUR CYCLES

REACTIONS (2)
  - Coronary artery dissection [Recovering/Resolving]
  - Ischaemic cardiomyopathy [Recovering/Resolving]
